FAERS Safety Report 23243415 (Version 1)
Quarter: 2023Q4

REPORT INFORMATION
  Report Type: Spontaneous
  Country: US (occurrence: US)
  Receive Date: 20231130
  Receipt Date: 20231130
  Transmission Date: 20240110
  Serious: No
  Sender: FDA-Public Use
  Company Number: US-KARYOPHARM-2023KPT002041

PATIENT

DRUGS (13)
  1. XPOVIO [Suspect]
     Active Substance: SELINEXOR
     Indication: Plasma cell myeloma
     Dosage: 100 MG, WEEKLY
     Route: 048
     Dates: start: 202309, end: 2023
  2. XPOVIO [Suspect]
     Active Substance: SELINEXOR
     Dosage: 50 MG, WEEKLY
     Route: 048
     Dates: start: 202310
  3. NITROGLYCERIN [Concomitant]
     Active Substance: NITROGLYCERIN
  4. ALLOPURINOL [Concomitant]
     Active Substance: ALLOPURINOL
  5. DECADRON [Concomitant]
     Active Substance: DEXAMETHASONE
  6. OLANZAPINE [Concomitant]
     Active Substance: OLANZAPINE
  7. LOPRESSOR [Concomitant]
     Active Substance: METOPROLOL TARTRATE
  8. XGEVA [Concomitant]
     Active Substance: DENOSUMAB
  9. MELOXICAM [Concomitant]
     Active Substance: MELOXICAM
  10. PROZAC [Concomitant]
     Active Substance: FLUOXETINE HYDROCHLORIDE
  11. PLAVIX [Concomitant]
     Active Substance: CLOPIDOGREL BISULFATE
  12. GABAPENTIN [Concomitant]
     Active Substance: GABAPENTIN
  13. ZOFRAN [Concomitant]
     Active Substance: ONDANSETRON HYDROCHLORIDE

REACTIONS (2)
  - Fatigue [Unknown]
  - Nausea [Not Recovered/Not Resolved]

NARRATIVE: CASE EVENT DATE: 20230101
